FAERS Safety Report 6357086-7 (Version None)
Quarter: 2009Q3

REPORT INFORMATION
  Report Type: 
  Country: None (occurrence: None)
  Receive Date: 20090910
  Receipt Date: 20090825
  Transmission Date: 20100115
  Serious: Yes (Death, Hospitalization)
  Sender: FDA-Public Use
  Company Number: 2009AL003195

PATIENT
  Age: 62 Year
  Sex: Female

DRUGS (7)
  1. DIGITOXIN TAB [Suspect]
     Dosage: PO
     Route: 048
  2. COREG [Concomitant]
  3. ALTACE [Concomitant]
  4. BUMEX [Concomitant]
  5. ALDACTONE [Concomitant]
  6. ALBUTEROL [Concomitant]
  7. PROCARDIA [Concomitant]

REACTIONS (8)
  - CARDIAC FAILURE CONGESTIVE [None]
  - CONGESTIVE CARDIOMYOPATHY [None]
  - DYSPNOEA [None]
  - EMOTIONAL DISTRESS [None]
  - INJURY [None]
  - MITRAL VALVE DISEASE [None]
  - PAIN [None]
  - PERICARDIAL EFFUSION [None]
